FAERS Safety Report 19192511 (Version 1)
Quarter: 2021Q2

REPORT INFORMATION
  Report Type: Report from Study
  Country: US (occurrence: US)
  Receive Date: 20210429
  Receipt Date: 20210429
  Transmission Date: 20210717
  Serious: Yes (Death, Other)
  Sender: FDA-Public Use
  Company Number: US-ACADIA PHARMACEUTICALS INC.-ACA-2021-PIM-001458

PATIENT
  Age: 74 Year
  Sex: Male

DRUGS (11)
  1. METOPROLOL SUCCINATE. [Concomitant]
     Active Substance: METOPROLOL SUCCINATE
     Route: 065
  2. NUPLAZID [Suspect]
     Active Substance: PIMAVANSERIN TARTRATE
     Indication: HALLUCINATION
     Dosage: 34 MILLIGRAM, QD
     Route: 048
     Dates: start: 20210126, end: 20210416
  3. RYTARY [Concomitant]
     Active Substance: CARBIDOPA\LEVODOPA
     Route: 065
  4. QUETIAPINE. [Concomitant]
     Active Substance: QUETIAPINE
     Route: 065
  5. NUPLAZID [Suspect]
     Active Substance: PIMAVANSERIN TARTRATE
     Indication: PARKINSON^S DISEASE
  6. ALFUZOSIN [Concomitant]
     Active Substance: ALFUZOSIN
     Route: 065
  7. ALBUTEROL HFA [Concomitant]
     Active Substance: ALBUTEROL SULFATE
     Dosage: UNK
     Route: 065
  8. FLUDROCORTISONE [Concomitant]
     Active Substance: FLUDROCORTISONE
     Dosage: UNK
     Route: 065
  9. SODIUM CHLORIDE. [Concomitant]
     Active Substance: SODIUM CHLORIDE
     Dosage: 1 GRAM
     Route: 065
  10. DONEPEZIL. [Concomitant]
     Active Substance: DONEPEZIL
     Route: 065
  11. MODERNA COVID?19 VACCINE [Concomitant]
     Active Substance: CX-024414

REACTIONS (1)
  - Death [Fatal]

NARRATIVE: CASE EVENT DATE: 20210416
